FAERS Safety Report 24698913 (Version 1)
Quarter: 2024Q4

REPORT INFORMATION
  Report Type: Spontaneous
  Country: IT (occurrence: IT)
  Receive Date: 20241205
  Receipt Date: 20241205
  Transmission Date: 20250114
  Serious: Yes (Other)
  Sender: CSL BEHRING
  Company Number: None

PATIENT
  Age: 22 Year
  Sex: Female

DRUGS (2)
  1. PRIVIGEN [Suspect]
     Active Substance: HUMAN IMMUNOGLOBULIN G
     Indication: Myasthenia gravis
     Dosage: 5 G
     Route: 042
     Dates: start: 20241113, end: 20241113
  2. PRIVIGEN [Suspect]
     Active Substance: HUMAN IMMUNOGLOBULIN G
     Indication: Off label use
     Dosage: 25 G
     Route: 042
     Dates: start: 20241113, end: 20241113

REACTIONS (5)
  - Off label use [Unknown]
  - Dizziness [Recovering/Resolving]
  - Tachycardia [Recovering/Resolving]
  - Feeling cold [Recovering/Resolving]
  - Tongue pruritus [Recovering/Resolving]

NARRATIVE: CASE EVENT DATE: 20241113
